FAERS Safety Report 7190635-8 (Version None)
Quarter: 2010Q4

REPORT INFORMATION
  Report Type: 
  Country: None (occurrence: None)
  Receive Date: 20101221
  Receipt Date: 20101221
  Transmission Date: 20110411
  Serious: Yes (Hospitalization, Other)
  Sender: FDA-Public Use
  Company Number: None

PATIENT
  Age: 38 Year
  Sex: Female
  Weight: 58.9676 kg

DRUGS (4)
  1. CETIRIZINE HCL AND PSEUDOEPHEDRINE [Suspect]
     Indication: CHRONIC SINUSITIS
     Dosage: 1 PILL 2 TIMES PER DAY PO
     Route: 048
     Dates: start: 19920101, end: 20101206
  2. CETIRIZINE HCL AND PSEUDOEPHEDRINE [Suspect]
     Indication: SEASONAL ALLERGY
     Dosage: 1 PILL 2 TIMES PER DAY PO
     Route: 048
     Dates: start: 19920101, end: 20101206
  3. SEASONALE [Concomitant]
  4. FLONASE [Concomitant]

REACTIONS (6)
  - DRUG WITHDRAWAL SYNDROME [None]
  - DYSKINESIA [None]
  - GASTRIC DISORDER [None]
  - INSOMNIA [None]
  - MALAISE [None]
  - NEUROPATHY PERIPHERAL [None]
